FAERS Safety Report 25218682 (Version 1)
Quarter: 2025Q2

REPORT INFORMATION
  Report Type: Spontaneous
  Country: IT (occurrence: IT)
  Receive Date: 20250421
  Receipt Date: 20250421
  Transmission Date: 20250716
  Serious: Yes (Other)
  Sender: RANBAXY
  Company Number: IT-SUN PHARMACEUTICAL INDUSTRIES LTD-2025R1-504521

PATIENT
  Age: 62 Year
  Sex: Female

DRUGS (4)
  1. FLUCONAZOLE [Interacting]
     Active Substance: FLUCONAZOLE
     Indication: Hyperaldosteronism
     Dosage: 50 MILLIGRAM, BID
     Route: 065
  2. RAMIPRIL [Suspect]
     Active Substance: RAMIPRIL
     Indication: Hyperaldosteronism
     Route: 065
  3. VERAPAMIL [Suspect]
     Active Substance: VERAPAMIL HYDROCHLORIDE
     Indication: Hyperaldosteronism
     Route: 065
  4. ROSUVASTATIN [Concomitant]
     Active Substance: ROSUVASTATIN
     Indication: Hyperaldosteronism
     Route: 065

REACTIONS (4)
  - Drug interaction [Unknown]
  - Hypokalaemia [Unknown]
  - Alkalosis [Unknown]
  - Rhabdomyolysis [Unknown]
